FAERS Safety Report 9793027 (Version 1)
Quarter: 2014Q1

REPORT INFORMATION
  Report Type: Spontaneous
  Country: FR (occurrence: FR)
  Receive Date: 20140102
  Receipt Date: 20140102
  Transmission Date: 20141002
  Serious: Yes (Hospitalization)
  Sender: FDA-Public Use
  Company Number: FR-PFIZER INC-2013371211

PATIENT
  Age: 79 Year
  Sex: Female
  Weight: 72 kg

DRUGS (15)
  1. AMLOR [Suspect]
     Indication: CARDIAC FAILURE
     Dosage: 5 MG, 1X/DAY
     Route: 048
     Dates: start: 20130724, end: 20131107
  2. ADANCOR [Suspect]
     Indication: CARDIAC FAILURE
     Dosage: 10 MG, 2X/DAY
     Route: 048
     Dates: start: 20130724, end: 20131107
  3. PERINDOPRIL [Concomitant]
     Dosage: 8 MG, UNK
     Route: 048
  4. LASILIX SPECIAL [Concomitant]
     Indication: OEDEMA
     Dosage: 500 MG, UNK
     Route: 049
  5. LASILIX SPECIAL [Concomitant]
     Dosage: 160 MG, UNK
     Route: 048
     Dates: start: 20130822
  6. PARACETAMOL [Concomitant]
     Indication: PAIN
     Dosage: UNK
     Route: 048
     Dates: start: 20130905
  7. ACTISKENAN [Concomitant]
     Indication: PAIN
     Dosage: UNK
     Route: 048
     Dates: start: 20130823
  8. CARDENSIEL [Concomitant]
     Dosage: 5 MG, UNK
     Route: 048
  9. COUMADINE [Concomitant]
     Route: 048
  10. DIFFU K [Concomitant]
     Route: 048
  11. INIPOMP [Concomitant]
     Route: 048
  12. DOMPERIDONE [Concomitant]
     Route: 048
  13. TRANSIPEG [Concomitant]
     Route: 048
  14. DIPROSONE [Concomitant]
     Route: 048
  15. PHYSIOTENS [Concomitant]
     Dosage: UNK
     Route: 048
     Dates: end: 20130724

REACTIONS (1)
  - Impaired healing [Recovering/Resolving]
